FAERS Safety Report 9598242 (Version 1)
Quarter: 2013Q4

REPORT INFORMATION
  Report Type: Spontaneous
  Country: US (occurrence: US)
  Receive Date: 20131004
  Receipt Date: 20131004
  Transmission Date: 20140711
  Serious: No
  Sender: FDA-Public Use
  Company Number: US-AMGEN-USASP2013022938

PATIENT
  Age: 56 Year
  Sex: Male
  Weight: 87.08 kg

DRUGS (13)
  1. ENBREL [Suspect]
     Indication: PRODUCT USED FOR UNKNOWN INDICATION
     Dosage: 50 MG, QWK
     Route: 058
  2. METHOTREXATE [Concomitant]
     Dosage: 1 G, UNK
  3. LORATADINE/PSEUDOEPHEDRINE SULFATE [Concomitant]
     Dosage: UNK,10-240 MG
  4. TRAMADOL HCL [Concomitant]
     Dosage: 100 MG, UNK
  5. IBUPROFEN [Concomitant]
     Dosage: 200 MG, UNK
  6. VENLAFAXINE [Concomitant]
     Dosage: UNK, 37.5
  7. FOLIC ACID [Concomitant]
     Dosage: UNK
  8. LOVASTATIN [Concomitant]
     Dosage: 20 MG, UNK
  9. LISINOPRIL [Concomitant]
     Dosage: 2.5 MG, UNK
  10. ASA [Concomitant]
     Dosage: 81 MG, UNK
  11. ACETAMINOPHEN [Concomitant]
     Dosage: 500 MG, UNK
  12. RANITIDINE [Concomitant]
     Dosage: 150 MG, UNK
  13. MULTIVITAMINS, PLAIN [Concomitant]
     Dosage: UNK

REACTIONS (2)
  - Nasopharyngitis [Unknown]
  - Sinusitis [Unknown]
